FAERS Safety Report 25173027 (Version 3)
Quarter: 2025Q2

REPORT INFORMATION
  Report Type: Spontaneous
  Country: FR (occurrence: FR)
  Receive Date: 20250408
  Receipt Date: 20250527
  Transmission Date: 20250717
  Serious: Yes (Other)
  Sender: Methapharma
  Company Number: FR-CHEMISCHE FABRIK KREUSSLER-ae005FR25

PATIENT
  Age: 62 Year
  Sex: Female
  Weight: 54 kg

DRUGS (18)
  1. ASCLERA [Suspect]
     Active Substance: POLIDOCANOL
     Indication: Telangiectasia
  2. ASCLERA [Suspect]
     Active Substance: POLIDOCANOL
  3. DOLIPRANE [Concomitant]
     Active Substance: ACETAMINOPHEN
     Indication: Ankylosing spondylitis
  4. CELEBREX [Concomitant]
     Active Substance: CELECOXIB
     Indication: Ankylosing spondylitis
  5. TRAMADOL HYDROCHLORIDE [Concomitant]
     Active Substance: TRAMADOL HYDROCHLORIDE
     Indication: Ankylosing spondylitis
  6. ESOMEPRAZOLE [Concomitant]
     Active Substance: ESOMEPRAZOLE
     Indication: Ankylosing spondylitis
  7. NEBIVOLOL [Concomitant]
     Active Substance: NEBIVOLOL
  8. AETOXISCLEROL [Suspect]
     Active Substance: POLIDOCANOL
     Indication: Phlebosclerosis
  9. AETOXISCLEROL [Suspect]
     Active Substance: POLIDOCANOL
  10. AETOXISCLEROL [Suspect]
     Active Substance: POLIDOCANOL
  11. AETOXISCLEROL [Suspect]
     Active Substance: POLIDOCANOL
  12. AETOXISCLEROL [Suspect]
     Active Substance: POLIDOCANOL
     Indication: Telangiectasia
  13. AETOXISCLEROL [Suspect]
     Active Substance: POLIDOCANOL
     Indication: Ankylosing spondylitis
  14. AETOXISCLEROL [Suspect]
     Active Substance: POLIDOCANOL
     Indication: Ankylosing spondylitis
  15. AETOXISCLEROL [Suspect]
     Active Substance: POLIDOCANOL
     Indication: Ankylosing spondylitis
  16. AETOXISCLEROL [Suspect]
     Active Substance: POLIDOCANOL
     Indication: Ankylosing spondylitis
  17. AETOXISCLEROL [Suspect]
     Active Substance: POLIDOCANOL
     Indication: Phlebosclerosis
  18. AETOXISCLEROL [Suspect]
     Active Substance: POLIDOCANOL

REACTIONS (24)
  - Blue toe syndrome [Recovering/Resolving]
  - Peripheral swelling [Unknown]
  - Secretion discharge [Recovered/Resolved]
  - Skin exfoliation [Not Recovered/Not Resolved]
  - Pain [Unknown]
  - Blister [Unknown]
  - Petechiae [Recovered/Resolved]
  - Pruritus [Unknown]
  - Skin necrosis [Not Recovered/Not Resolved]
  - Peripheral swelling [Recovering/Resolving]
  - Skin exfoliation [Recovering/Resolving]
  - Pain [Recovering/Resolving]
  - Blister [Recovering/Resolving]
  - Pruritus [Recovering/Resolving]
  - Skin necrosis [Recovering/Resolving]
  - Blue toe syndrome [Recovering/Resolving]
  - Peripheral swelling [Recovering/Resolving]
  - Secretion discharge [Recovered/Resolved]
  - Skin exfoliation [Recovering/Resolving]
  - Pain [Recovering/Resolving]
  - Blister [Recovering/Resolving]
  - Petechiae [Recovered/Resolved]
  - Pruritus [Recovering/Resolving]
  - Skin necrosis [Recovering/Resolving]

NARRATIVE: CASE EVENT DATE: 20250101
